FAERS Safety Report 9282633 (Version 2)
Quarter: 2013Q2

REPORT INFORMATION
  Report Type: Spontaneous
  Country: PL (occurrence: PL)
  Receive Date: 20130510
  Receipt Date: 20130514
  Transmission Date: 20140414
  Serious: Yes (Other)
  Sender: FDA-Public Use
  Company Number: PHHY2013PL045486

PATIENT
  Age: 43 Year
  Sex: Male

DRUGS (5)
  1. GILENYA [Suspect]
     Indication: MULTIPLE SCLEROSIS
     Route: 048
     Dates: start: 20110603
  2. ASPIRIN [Concomitant]
  3. VIT C [Concomitant]
  4. LINSEED [Concomitant]
  5. ANTITHROMBOTIC AGENTS [Concomitant]

REACTIONS (4)
  - Venous stenosis [Unknown]
  - Ischaemia [Unknown]
  - Venous insufficiency [Unknown]
  - Central nervous system lesion [Unknown]
